FAERS Safety Report 6231503-5 (Version None)
Quarter: 2009Q2

REPORT INFORMATION
  Report Type: 
  Country: None (occurrence: None)
  Receive Date: 20090616
  Receipt Date: 20090615
  Transmission Date: 20091009
  Serious: Yes (Life-Threatening, Hospitalization)
  Sender: FDA-Public Use
  Company Number: B0556376A

PATIENT
  Sex: Female

DRUGS (13)
  1. ZIAGEN [Suspect]
     Indication: HIV INFECTION
     Route: 048
     Dates: start: 20081024, end: 20081024
  2. BACTRIM [Suspect]
     Indication: PROPHYLAXIS
     Route: 048
     Dates: start: 20081018, end: 20081023
  3. CONTRAMAL [Suspect]
     Dosage: 50MG PER DAY
     Route: 048
     Dates: start: 20081024, end: 20081024
  4. ABACAVIR [Suspect]
     Indication: HIV INFECTION
  5. LAMIVUDINE [Suspect]
     Indication: HIV INFECTION
  6. ZIDOVUDINE [Suspect]
     Indication: HIV INFECTION
  7. LOPINAVIR [Suspect]
     Indication: HIV INFECTION
  8. RITONAVIR [Suspect]
     Indication: HIV INFECTION
  9. ENFUVIRTIDE [Suspect]
     Indication: HIV INFECTION
  10. SEROPRAM [Concomitant]
     Route: 065
  11. INIPOMP [Concomitant]
  12. ZOLPIDEM TARTRATE [Concomitant]
     Route: 048
  13. LEXOMIL [Concomitant]
     Route: 048

REACTIONS (16)
  - ACUTE RESPIRATORY FAILURE [None]
  - BLOOD PRESSURE DECREASED [None]
  - CIRCULATORY COLLAPSE [None]
  - DIARRHOEA [None]
  - HYPERSENSITIVITY [None]
  - HYPOTENSION [None]
  - IMMUNODEFICIENCY [None]
  - LACTIC ACIDOSIS [None]
  - PRURITUS [None]
  - PYREXIA [None]
  - RASH [None]
  - RENAL FAILURE [None]
  - RHABDOMYOLYSIS [None]
  - SOMNOLENCE [None]
  - TRANSAMINASES INCREASED [None]
  - VOMITING [None]
